FAERS Safety Report 14877186 (Version 4)
Quarter: 2018Q3

REPORT INFORMATION
  Report Type: Report from Study
  Country: US (occurrence: US)
  Receive Date: 20180510
  Receipt Date: 20180824
  Transmission Date: 20181010
  Serious: Yes (Death, Hospitalization, Other)
  Sender: FDA-Public Use
  Company Number: US-TAKEDA-2018TUS006208

PATIENT
  Sex: Female

DRUGS (1)
  1. PONATINIB [Suspect]
     Active Substance: PONATINIB
     Indication: CHRONIC MYELOID LEUKAEMIA
     Dosage: 45 MG, QD
     Route: 048
     Dates: start: 20150320

REACTIONS (24)
  - Death [Fatal]
  - Ovarian adenoma [Unknown]
  - Influenza [Unknown]
  - Vomiting [Unknown]
  - Folate deficiency [Unknown]
  - Sleep apnoea syndrome [Unknown]
  - Abdominal rigidity [Unknown]
  - Gastrointestinal pain [Unknown]
  - Hypothyroidism [Unknown]
  - Pleural effusion [Unknown]
  - Insomnia [Unknown]
  - Myocardial infarction [Unknown]
  - Anaemia [Unknown]
  - Pneumonia [Unknown]
  - Upper respiratory tract infection [Unknown]
  - Nausea [Unknown]
  - Lung neoplasm [Unknown]
  - Acrochordon [Unknown]
  - Anxiety disorder [Unknown]
  - Oedema peripheral [Unknown]
  - Respiratory failure [Unknown]
  - Essential hypertension [Unknown]
  - Dyspnoea [Unknown]
  - Cellulitis [Unknown]
